FAERS Safety Report 23863766 (Version 1)
Quarter: 2024Q2

REPORT INFORMATION
  Report Type: Spontaneous
  Country: US (occurrence: None)
  Receive Date: 20240516
  Receipt Date: 20240516
  Transmission Date: 20240716
  Serious: Yes (Hospitalization)
  Sender: FDA-Public Use
  Company Number: None

PATIENT
  Sex: Female
  Weight: 87.3 kg

DRUGS (3)
  1. CARBOPLATIN [Suspect]
     Active Substance: CARBOPLATIN
  2. GEMCITABINE HYDROCHLORIDE [Suspect]
     Active Substance: GEMCITABINE HYDROCHLORIDE
  3. PACLITAXEL [Suspect]
     Active Substance: PACLITAXEL

REACTIONS (4)
  - Dyspnoea [None]
  - Fatigue [None]
  - Bone pain [None]
  - Disease progression [None]

NARRATIVE: CASE EVENT DATE: 20231026
